FAERS Safety Report 26031763 (Version 1)
Quarter: 2025Q4

REPORT INFORMATION
  Report Type: Other
  Country: GB (occurrence: GB)
  Receive Date: 20251112
  Receipt Date: 20251112
  Transmission Date: 20260118
  Serious: Yes (Other)
  Sender: IPCA
  Company Number: None

PATIENT

DRUGS (1)
  1. HYDROXYCHLOROQUINE [Suspect]
     Active Substance: HYDROXYCHLOROQUINE
     Indication: Mixed connective tissue disease
     Dosage: UNK
     Route: 065
     Dates: start: 20251005

REACTIONS (4)
  - Suicidal ideation [Not Recovered/Not Resolved]
  - Paranoia [Not Recovered/Not Resolved]
  - Aggression [Not Recovered/Not Resolved]
  - Systemic lupus erythematosus rash [Not Recovered/Not Resolved]
